FAERS Safety Report 4947065-6 (Version None)
Quarter: 2006Q1

REPORT INFORMATION
  Report Type: 
  Country: None (occurrence: None)
  Receive Date: 20060314
  Receipt Date: 20060302
  Transmission Date: 20060701
  Serious: Yes (Other)
  Sender: FDA-Public Use
  Company Number: A-US2005-11126

PATIENT
  Age: 63 Year
  Sex: Male

DRUGS (1)
  1. TRACLEER [Suspect]
     Indication: PULMONARY HYPERTENSION
     Dosage: 62.5 MG, QD, ORAL
     Route: 048
     Dates: start: 20051001, end: 20051031

REACTIONS (7)
  - CARDIAC FAILURE CONGESTIVE [None]
  - DYSPNOEA PAROXYSMAL NOCTURNAL [None]
  - FATIGUE [None]
  - GENERALISED OEDEMA [None]
  - ORTHOPNOEA [None]
  - VARICES OESOPHAGEAL [None]
  - WEIGHT INCREASED [None]
